FAERS Safety Report 18706418 (Version 3)
Quarter: 2021Q2

REPORT INFORMATION
  Report Type: Spontaneous
  Country: US (occurrence: US)
  Receive Date: 20210106
  Receipt Date: 20210401
  Transmission Date: 20210717
  Serious: Yes (Life-Threatening, Hospitalization, Other)
  Sender: FDA-Public Use
  Company Number: US-ELI_LILLY_AND_COMPANY-US202101000728

PATIENT
  Age: 43 Year
  Sex: Female

DRUGS (6)
  1. REMDESIVIR. [Concomitant]
     Active Substance: REMDESIVIR
     Indication: COVID-19
     Dosage: UNK UNK, UNKNOWN
     Route: 065
     Dates: start: 20201209, end: 20201213
  2. BARICITINIB. [Suspect]
     Active Substance: BARICITINIB
     Indication: COVID-19
     Dosage: 4 MG, DAILY
     Route: 048
     Dates: start: 20201210, end: 20201211
  3. PREDNISONE. [Concomitant]
     Active Substance: PREDNISONE
     Indication: COVID-19
     Dosage: UNK UNK, UNKNOWN
     Route: 065
  4. DEXAMETHASONE. [Concomitant]
     Active Substance: DEXAMETHASONE
     Indication: COVID-19
     Dosage: UNK UNK, UNKNOWN
     Route: 065
     Dates: start: 20201209, end: 20201218
  5. BARICITINIB. [Suspect]
     Active Substance: BARICITINIB
     Dosage: 2 MG, DAILY
     Route: 048
     Dates: start: 20201212, end: 20201217
  6. BARICITINIB. [Suspect]
     Active Substance: BARICITINIB
     Dosage: 4 MG, DAILY
     Route: 048
     Dates: start: 20201218, end: 20201219

REACTIONS (6)
  - Acute kidney injury [Recovered/Resolved]
  - Pneumonia [Unknown]
  - Escherichia urinary tract infection [Unknown]
  - Corynebacterium infection [Unknown]
  - Pneumonia staphylococcal [Unknown]
  - Respiratory failure [Unknown]

NARRATIVE: CASE EVENT DATE: 20201229
